FAERS Safety Report 8890545 (Version 2)
Quarter: 2013Q1

REPORT INFORMATION
  Report Type: Report from Study
  Country: JP (occurrence: JP)
  Receive Date: 20121107
  Receipt Date: 20130125
  Transmission Date: 20140127
  Serious: No
  Sender: FDA-Public Use
  Company Number: JP-ASTELLAS-2012JP010398

PATIENT
  Sex: Female
  Weight: 48.4 kg

DRUGS (3)
  1. MIRABEGRON [Suspect]
     Indication: HYPERTONIC BLADDER
     Dosage: 25 MG, BID
     Route: 048
     Dates: start: 20120806, end: 20120819
  2. MIRABEGRON [Suspect]
     Dosage: 25 MG, UID/QD
     Route: 048
     Dates: start: 20120730, end: 20120805
  3. MIRABEGRON [Suspect]
     Dosage: 25 MG, UID/QD
     Route: 048
     Dates: start: 20120820

REACTIONS (2)
  - Intentional drug misuse [Unknown]
  - Arrhythmia [Recovered/Resolved]
